FAERS Safety Report 24191147 (Version 1)
Quarter: 2024Q3

REPORT INFORMATION
  Report Type: Spontaneous
  Country: US (occurrence: None)
  Receive Date: 20240808
  Receipt Date: 20240808
  Transmission Date: 20241016
  Serious: Yes (Other)
  Sender: Public
  Company Number: None

PATIENT
  Age: 74 Year
  Sex: Male

DRUGS (2)
  1. NIACIN [Suspect]
     Active Substance: NIACIN
     Dosage: FREQUENCY : 3 TIMES A DAY;?
     Route: 048
  2. niacinamide 500mg [Concomitant]

REACTIONS (7)
  - Product dispensing error [None]
  - Product dispensing error [None]
  - Wrong product administered [None]
  - Erythema [None]
  - Skin burning sensation [None]
  - Blood pressure increased [None]
  - Near death experience [None]

NARRATIVE: CASE EVENT DATE: 20240807
